FAERS Safety Report 10596630 (Version 1)
Quarter: 2014Q4

REPORT INFORMATION
  Report Type: Spontaneous
  Country: FR (occurrence: FR)
  Receive Date: 20141120
  Receipt Date: 20141120
  Transmission Date: 20150529
  Serious: Yes (Hospitalization)
  Sender: FDA-Public Use
  Company Number: PHHY2014FR148513

PATIENT
  Age: 14 Year
  Sex: Female

DRUGS (1)
  1. PARACETAMOL [Suspect]
     Active Substance: ACETAMINOPHEN
     Indication: PRODUCT USED FOR UNKNOWN INDICATION
     Dosage: 15 G, (214 MG/KG )
     Route: 065

REACTIONS (7)
  - Acute kidney injury [Recovered/Resolved]
  - Leukocyturia [Recovered/Resolved]
  - Renal impairment [Recovered/Resolved]
  - Proteinuria [Recovered/Resolved]
  - Acute hepatic failure [Recovered/Resolved]
  - Overdose [Recovered/Resolved]
  - Toxicity to various agents [Recovered/Resolved]
